FAERS Safety Report 15021159 (Version 2)
Quarter: 2018Q2

REPORT INFORMATION
  Report Type: Spontaneous
  Country: US (occurrence: US)
  Receive Date: 20180618
  Receipt Date: 20180628
  Transmission Date: 20180711
  Serious: No
  Sender: FDA-Public Use
  Company Number: US-APOTEX-2018AP015237

PATIENT
  Age: 19 Year
  Sex: Male

DRUGS (1)
  1. ZOLPIDEM [Suspect]
     Active Substance: ZOLPIDEM\ZOLPIDEM TARTRATE
     Indication: CIRCADIAN RHYTHM SLEEP DISORDER
     Dosage: UNK
     Route: 065

REACTIONS (2)
  - Hallucination [Unknown]
  - Somnolence [Unknown]
